FAERS Safety Report 5694809-4 (Version None)
Quarter: 2008Q2

REPORT INFORMATION
  Report Type: 
  Country: None (occurrence: None)
  Receive Date: 20080404
  Receipt Date: 20080402
  Transmission Date: 20081010
  Serious: Yes (Hospitalization, Other)
  Sender: FDA-Public Use
  Company Number: US-MERCK-0708USA05883

PATIENT
  Age: 65 Year
  Sex: Female
  Weight: 73 kg

DRUGS (2)
  1. FOSAMAX [Suspect]
     Indication: OSTEOPOROSIS
     Route: 048
     Dates: start: 20000519, end: 20050201
  2. FOSAMAX [Suspect]
     Route: 048
     Dates: start: 20050301, end: 20051011

REACTIONS (8)
  - CARDIAC FAILURE CONGESTIVE [None]
  - CHRONIC OBSTRUCTIVE PULMONARY DISEASE [None]
  - COR PULMONALE [None]
  - DEPRESSION [None]
  - OSTEONECROSIS [None]
  - PNEUMONIA [None]
  - RESPIRATORY FAILURE [None]
  - TYMPANIC MEMBRANE PERFORATION [None]
